FAERS Safety Report 9292411 (Version 1)
Quarter: 2013Q2

REPORT INFORMATION
  Report Type: Spontaneous
  Country: US (occurrence: US)
  Receive Date: 20130516
  Receipt Date: 20130516
  Transmission Date: 20140414
  Serious: Yes (Hospitalization)
  Sender: FDA-Public Use
  Company Number: US-SANOFI-AVENTIS-2013SA049080

PATIENT
  Age: 83 Year
  Sex: Male
  Weight: 99 kg

DRUGS (4)
  1. PLAVIX [Suspect]
     Indication: PRODUCT USED FOR UNKNOWN INDICATION
  2. PROVENGE [Suspect]
     Indication: PROSTATE CANCER
     Route: 042
     Dates: start: 20130307, end: 20130307
  3. PROVENGE [Suspect]
     Indication: PROSTATE CANCER
     Route: 042
     Dates: start: 20130411, end: 20130411
  4. ASPIRIN [Suspect]

REACTIONS (2)
  - Renal failure acute [Recovering/Resolving]
  - Post procedural haemorrhage [Recovering/Resolving]
